FAERS Safety Report 5657521-3 (Version None)
Quarter: 2008Q1

REPORT INFORMATION
  Report Type: 
  Country: None (occurrence: None)
  Receive Date: 20080307
  Receipt Date: 20080307
  Transmission Date: 20080703
  Serious: Yes (Other)
  Sender: FDA-Public Use
  Company Number: None

PATIENT
  Age: 72 Year
  Sex: Female
  Weight: 75.0249 kg

DRUGS (5)
  1. BONIVA [Suspect]
     Indication: OSTEOPOROSIS
     Dosage: 3 MG EVERY 3 MONTHS IV BOLUS
     Route: 040
     Dates: start: 20070606, end: 20071203
  2. BONIVA [Suspect]
     Indication: OSTEOPOROSIS
     Dosage: 3 MG EVERY 3 MONTHS IV BOLUS
     Route: 040
     Dates: start: 20070905, end: 20080303
  3. COUMADIN [Concomitant]
  4. TOPROL [Concomitant]
  5. CALCIUM [Concomitant]

REACTIONS (5)
  - INFUSION SITE ERYTHEMA [None]
  - INFUSION SITE PAIN [None]
  - INFUSION SITE SWELLING [None]
  - INJECTION SITE PAIN [None]
  - PAIN IN EXTREMITY [None]
